FAERS Safety Report 6924623-0 (Version None)
Quarter: 2010Q3

REPORT INFORMATION
  Report Type: 
  Country: None (occurrence: None)
  Receive Date: 20100815
  Receipt Date: 20090427
  Transmission Date: 20110219
  Serious: No
  Sender: FDA-Public Use
  Company Number: A0860921A

PATIENT
  Sex: Male
  Weight: 70.3 kg

DRUGS (1)
  1. TREXIMET [Suspect]
     Indication: PRODUCT USED FOR UNKNOWN INDICATION
     Route: 065

REACTIONS (2)
  - BURNING SENSATION [None]
  - SKIN BURNING SENSATION [None]
